FAERS Safety Report 7529079-5 (Version None)
Quarter: 2011Q2

REPORT INFORMATION
  Report Type: 
  Country: None (occurrence: None)
  Receive Date: 20110607
  Receipt Date: 20110601
  Transmission Date: 20111010
  Serious: Yes (Death)
  Sender: FDA-Public Use
  Company Number: PHHY2011US47802

PATIENT
  Sex: Male

DRUGS (4)
  1. DEXAMETHASONE [Concomitant]
  2. OXYBUTYNIN CHLORIDE [Concomitant]
  3. ZOMETA [Suspect]
     Indication: METASTASES TO BONE
     Dosage: 1 TO 4 MG, PER 5 ML EVERY FOUR WEEKS
     Dates: start: 20090101
  4. FUROSEMIDE [Concomitant]

REACTIONS (1)
  - DEATH [None]
